FAERS Safety Report 4402014-4 (Version None)
Quarter: 2004Q3

REPORT INFORMATION
  Report Type: 
  Country: None (occurrence: None)
  Receive Date: 20040719
  Receipt Date: 20040719
  Transmission Date: 20050211
  Serious: Yes (Hospitalization)
  Sender: FDA-Public Use
  Company Number: None

PATIENT
  Sex: Female
  Weight: 46.7205 kg

DRUGS (2)
  1. ZYPREXA [Suspect]
     Indication: ANXIETY
     Dosage: 2.5 MG AT BEDTIME ORAL
     Route: 048
     Dates: start: 20040625, end: 20040628
  2. ZYPREXA [Suspect]
     Indication: EATING DISORDER
     Dosage: 2.5 MG AT BEDTIME ORAL
     Route: 048
     Dates: start: 20040625, end: 20040628

REACTIONS (1)
  - CONVULSION [None]
